FAERS Safety Report 5271847-7 (Version None)
Quarter: 2007Q1

REPORT INFORMATION
  Report Type: 
  Country: None (occurrence: None)
  Receive Date: 20070316
  Receipt Date: 20070305
  Transmission Date: 20070707
  Serious: Yes (Hospitalization, Disabling, Other)
  Sender: FDA-Public Use
  Company Number: 2007SP001841

PATIENT
  Age: 63 Year
  Sex: Male
  Weight: 73 kg

DRUGS (7)
  1. TEMODAL [Suspect]
     Indication: GLIOBLASTOMA
     Dosage: SEE IMAGE
     Route: 048
     Dates: end: 20070207
  2. TEMODAL [Suspect]
     Indication: GLIOBLASTOMA
     Dosage: SEE IMAGE
     Route: 048
     Dates: start: 20061127
  3. NEURONTIN [Concomitant]
  4. SOLUPRED [Concomitant]
  5. OMEPRAZOLE [Concomitant]
  6. ALLOPURINOL [Concomitant]
  7. TAHOR [Concomitant]

REACTIONS (9)
  - ACTIVITIES OF DAILY LIVING IMPAIRED [None]
  - CSF PROTEIN DECREASED [None]
  - INSOMNIA [None]
  - MENINGITIS [None]
  - MUSCULAR WEAKNESS [None]
  - MYALGIA [None]
  - MYOCLONUS [None]
  - MYOPATHY [None]
  - NO THERAPEUTIC RESPONSE [None]
